FAERS Safety Report 19382807 (Version 2)
Quarter: 2021Q3

REPORT INFORMATION
  Report Type: Spontaneous
  Country: US (occurrence: US)
  Receive Date: 20210607
  Receipt Date: 20210713
  Transmission Date: 20211014
  Serious: Yes (Other)
  Sender: FDA-Public Use
  Company Number: US-AMERICAN REGENT INC-2021001445

PATIENT
  Age: 43 Year
  Sex: Female

DRUGS (2)
  1. CLARITIN?D NOS [Concomitant]
     Active Substance: LORATADINE\PSEUDOEPHEDRINE SULFATE
     Indication: PRODUCT USED FOR UNKNOWN INDICATION
     Dosage: UNK
     Route: 065
  2. INJECTAFER [Suspect]
     Active Substance: FERRIC CARBOXYMALTOSE
     Indication: IRON DEFICIENCY ANAEMIA
     Dosage: 750 MILLIGRAM IN 100 ML NS
     Route: 042
     Dates: start: 20210525, end: 20210525

REACTIONS (6)
  - Epistaxis [Recovered/Resolved]
  - Headache [Unknown]
  - Hypertension [Unknown]
  - Nasal discomfort [Unknown]
  - Head discomfort [Unknown]
  - Nasal disorder [Unknown]

NARRATIVE: CASE EVENT DATE: 202105
